FAERS Safety Report 4689159-9 (Version None)
Quarter: 2005Q2

REPORT INFORMATION
  Report Type: 
  Country: None (occurrence: None)
  Receive Date: 20050613
  Receipt Date: 20050602
  Transmission Date: 20051028
  Serious: Yes (Hospitalization)
  Sender: FDA-Public Use
  Company Number: 2005CG01047

PATIENT
  Age: 75 Year
  Sex: Male

DRUGS (8)
  1. ZESTRIL [Suspect]
     Indication: ESSENTIAL HYPERTENSION
     Route: 048
     Dates: end: 20050307
  2. ZESTRIL [Suspect]
     Route: 048
     Dates: start: 20050401
  3. ALDALIX [Suspect]
     Indication: ESSENTIAL HYPERTENSION
     Route: 048
     Dates: end: 20050307
  4. DIAMICRON [Concomitant]
     Indication: DIABETES MELLITUS
     Route: 048
     Dates: end: 20050307
  5. INSULATARD [Concomitant]
     Indication: DIABETES MELLITUS
     Dates: end: 20050307
  6. KREDEX [Concomitant]
     Route: 048
     Dates: end: 20050307
  7. PLAVIX [Concomitant]
     Indication: ATRIAL FIBRILLATION
     Route: 048
     Dates: end: 20050307
  8. PLAVIX [Concomitant]
     Indication: ATRIAL FLUTTER
     Route: 048
     Dates: end: 20050307

REACTIONS (4)
  - ARRHYTHMIA [None]
  - HYPERKALAEMIA [None]
  - METABOLIC ACIDOSIS [None]
  - RENAL FAILURE ACUTE [None]
